FAERS Safety Report 18659910 (Version 1)
Quarter: 2020Q4

REPORT INFORMATION
  Report Type: Spontaneous
  Country: HR (occurrence: HR)
  Receive Date: 20201224
  Receipt Date: 20201224
  Transmission Date: 20210114
  Serious: Yes (Other)
  Sender: FDA-Public Use
  Company Number: HR-PFIZER INC-2020499805

PATIENT
  Sex: Female

DRUGS (3)
  1. KETONAL [KETOPROFEN] [Suspect]
     Active Substance: KETOPROFEN
     Dosage: 1000 MG, DAILY (50 MG 20 TABLETS)
     Route: 048
     Dates: start: 20201118, end: 20201118
  2. VAIRA [Suspect]
     Active Substance: OLANZAPINE
     Dosage: 100 MG, DAILY (5 MG 20 TABLETS)
     Route: 048
     Dates: start: 20201118, end: 20201118
  3. ZOLOFT [Suspect]
     Active Substance: SERTRALINE HYDROCHLORIDE
     Dosage: 700 MG, DAILY (50 MG 14 TABLETS)
     Route: 048
     Dates: start: 20201118, end: 20201118

REACTIONS (8)
  - Seizure [Unknown]
  - Clonic convulsion [Unknown]
  - Muscle twitching [Unknown]
  - Suicide attempt [Unknown]
  - Muscle spasms [Unknown]
  - Miosis [Unknown]
  - Intentional overdose [Unknown]
  - Tic [Unknown]

NARRATIVE: CASE EVENT DATE: 20201118
